FAERS Safety Report 19779766 (Version 1)
Quarter: 2021Q3

REPORT INFORMATION
  Report Type: Spontaneous
  Country: US (occurrence: US)
  Receive Date: 20210902
  Receipt Date: 20210902
  Transmission Date: 20211014
  Serious: No
  Sender: FDA-Public Use
  Company Number: US-JNJFOC-20210902768

PATIENT
  Age: 55 Year
  Sex: Male
  Weight: 119.86 kg

DRUGS (5)
  1. IMODIUM [Suspect]
     Active Substance: LOPERAMIDE HYDROCHLORIDE
     Indication: DIARRHOEA
     Route: 065
  2. TRACLEER [Concomitant]
     Active Substance: BOSENTAN
  3. TREPROSTINIL. [Suspect]
     Active Substance: TREPROSTINIL
     Route: 048
  4. AMLODIPINE BESILATE [Concomitant]
     Active Substance: AMLODIPINE BESYLATE
  5. TREPROSTINIL. [Suspect]
     Active Substance: TREPROSTINIL
     Indication: PULMONARY ARTERIAL HYPERTENSION
     Dosage: 5MG,1,GM,0.25MG?EXPIRY DATE:31?01?2023
     Route: 048
     Dates: start: 20160718

REACTIONS (6)
  - Nausea [Unknown]
  - Constipation [Unknown]
  - Diarrhoea [Not Recovered/Not Resolved]
  - Gastric disorder [Unknown]
  - Fluid retention [Unknown]
  - Abdominal pain upper [Not Recovered/Not Resolved]
